FAERS Safety Report 6969446-1 (Version None)
Quarter: 2010Q3

REPORT INFORMATION
  Report Type: 
  Country: None (occurrence: None)
  Receive Date: 20100907
  Receipt Date: 20100827
  Transmission Date: 20110219
  Serious: Yes (Other)
  Sender: FDA-Public Use
  Company Number: US-AMGEN-QUU434456

PATIENT
  Sex: Female

DRUGS (12)
  1. NEULASTA [Suspect]
     Indication: CHEMOTHERAPY
     Dates: start: 20100721
  2. UNSPECIFIED BETA BLOCKER [Concomitant]
  3. VERAPAMIL HCL [Concomitant]
  4. ISOSORBIDE [Concomitant]
  5. PLAVIX [Concomitant]
  6. REQUIP [Concomitant]
  7. RITUXIMAB [Concomitant]
     Dates: start: 20100720
  8. CYCLOPHOSPHAMIDE [Concomitant]
     Dates: start: 20100720
  9. DOXORUBICIN HYDROCHLORIDE [Concomitant]
     Dates: start: 20100720
  10. VINCRISTINE [Concomitant]
     Dates: start: 20100720
  11. PREDNISOLONE [Concomitant]
     Dates: start: 20100720
  12. UNSPECIFIED PAIN MEDICATION [Concomitant]

REACTIONS (7)
  - ABDOMINAL PAIN [None]
  - ASTHENIA [None]
  - BLOOD PRESSURE INCREASED [None]
  - BONE PAIN [None]
  - HEART RATE INCREASED [None]
  - PARALYSIS [None]
  - PORPHYRIA [None]
